FAERS Safety Report 9698716 (Version 2)
Quarter: 2013Q4

REPORT INFORMATION
  Report Type: Spontaneous
  Country: PL (occurrence: PL)
  Receive Date: 20131120
  Receipt Date: 20131126
  Transmission Date: 20140711
  Serious: Yes (Hospitalization)
  Sender: FDA-Public Use
  Company Number: PL-PFIZER INC-2013330262

PATIENT
  Age: 42 Year
  Sex: Male
  Weight: 93 kg

DRUGS (4)
  1. CONTROLOC [Suspect]
     Indication: PANNICULITIS
     Dosage: 20 MG, UNK
     Route: 048
     Dates: start: 20130417, end: 20130417
  2. MOVALIS [Suspect]
     Indication: PANNICULITIS
     Dosage: 15 MG, UNK
     Route: 048
     Dates: start: 20130417, end: 20130417
  3. TOLPERISONE [Suspect]
     Dosage: 50 MG, UNK
     Route: 048
     Dates: start: 20130416, end: 20130417
  4. ROSUVASTATIN [Concomitant]
     Dosage: UNK
     Dates: start: 2011

REACTIONS (2)
  - Dermatitis [Recovering/Resolving]
  - Off label use [Unknown]
